FAERS Safety Report 15413162 (Version 2)
Quarter: 2018Q3

REPORT INFORMATION
  Report Type: Spontaneous
  Country: US (occurrence: US)
  Receive Date: 20180921
  Receipt Date: 20180924
  Transmission Date: 20181010
  Serious: No
  Sender: FDA-Public Use
  Company Number: US-TEVA-2018-US-955681

PATIENT
  Sex: Female

DRUGS (2)
  1. CRYSELLE [Suspect]
     Active Substance: ETHINYL ESTRADIOL\NORGESTREL
     Indication: CONTRACEPTION
  2. CRYSELLE [Suspect]
     Active Substance: ETHINYL ESTRADIOL\NORGESTREL
     Indication: POLYCYSTIC OVARIES
     Dosage: DOSE STRENGTH:  0.3/0.03
     Route: 065
     Dates: start: 20180908

REACTIONS (3)
  - Product use in unapproved indication [Unknown]
  - Skin disorder [Unknown]
  - Flushing [Unknown]
